FAERS Safety Report 7880462-8 (Version None)
Quarter: 2011Q4

REPORT INFORMATION
  Report Type: 
  Country: None (occurrence: None)
  Receive Date: 20111101
  Receipt Date: 20111025
  Transmission Date: 20120403
  Serious: Yes (Death, Other)
  Sender: FDA-Public Use
  Company Number: PHHY2011US67744

PATIENT
  Sex: Female

DRUGS (3)
  1. GLEEVEC [Suspect]
     Indication: CHROMOSOME ANALYSIS ABNORMAL
  2. GLEEVEC [Suspect]
     Indication: ACUTE LYMPHOCYTIC LEUKAEMIA
     Dosage: 400 MG, QD
     Route: 048
     Dates: start: 20110401, end: 20110601
  3. HYPER-CVAD [Concomitant]
     Dates: start: 20110401, end: 20110601

REACTIONS (5)
  - DEATH [None]
  - ACUTE RESPIRATORY FAILURE [None]
  - CHOLECYSTITIS [None]
  - RENAL FAILURE ACUTE [None]
  - FEBRILE NEUTROPENIA [None]
